FAERS Safety Report 9797404 (Version 2)
Quarter: 2014Q2

REPORT INFORMATION
  Report Type: Spontaneous
  Country: GB (occurrence: GB)
  Receive Date: 20140106
  Receipt Date: 20140404
  Transmission Date: 20141212
  Serious: Yes (Hospitalization)
  Sender: FDA-Public Use
  Company Number: GB-ACCORD-021078

PATIENT
  Age: 55 Year
  Sex: Female
  Weight: 70 kg

DRUGS (5)
  1. TIZANIDINE [Concomitant]
  2. IRON [Concomitant]
  3. BACLOFEN [Concomitant]
  4. TOLTERODINE/TOLTERODINE L-TARTRATE [Concomitant]
  5. SIMVASTATIN [Suspect]
     Indication: MULTIPLE SCLEROSIS
     Route: 048

REACTIONS (3)
  - Off label use [Unknown]
  - Sepsis [Recovered/Resolved]
  - Liver function test abnormal [Recovered/Resolved]
